FAERS Safety Report 6464739-9 (Version None)
Quarter: 2009Q4

REPORT INFORMATION
  Report Type: 
  Country: None (occurrence: None)
  Receive Date: 20091201
  Receipt Date: 20091125
  Transmission Date: 20100525
  Serious: No
  Sender: FDA-Public Use
  Company Number: US-B.I. PHARMACEUTICALS,INC./RIDGEFIELD-2009-BP-13190BP

PATIENT
  Age: 66 Year
  Sex: Female

DRUGS (19)
  1. SPIRIVA [Suspect]
     Indication: CHRONIC OBSTRUCTIVE PULMONARY DISEASE
     Dosage: 18 MCG
     Route: 055
     Dates: start: 20080101
  2. SPIRIVA [Suspect]
     Indication: EMPHYSEMA
  3. ADVAIR DISKUS 100/50 [Concomitant]
     Dosage: 4 PUF
  4. DUONEB [Concomitant]
     Dosage: 4 PUF
  5. COMBIVENT [Concomitant]
     Dosage: 8 PUF
  6. LANTUS [Concomitant]
  7. BABY ASPIRIN [Concomitant]
  8. ZETIA [Concomitant]
  9. CRESTOR [Concomitant]
  10. KLONOPIN [Concomitant]
  11. PAXIL [Concomitant]
  12. MOBIC [Concomitant]
  13. COLACE [Concomitant]
  14. HYDRALAZINE HCL [Concomitant]
  15. VERAPAMIL [Concomitant]
     Dosage: 210 MG
  16. OXYCODONE HCL [Concomitant]
  17. FLEXERIL [Concomitant]
  18. FISH OIL [Concomitant]
  19. LIDODERM [Concomitant]

REACTIONS (1)
  - MEMORY IMPAIRMENT [None]
